FAERS Safety Report 20757428 (Version 3)
Quarter: 2022Q2

REPORT INFORMATION
  Report Type: Spontaneous
  Country: CN (occurrence: None)
  Receive Date: 20220427
  Receipt Date: 20220504
  Transmission Date: 20220720
  Serious: Yes (Hospitalization, Other)
  Sender: FDA-Public Use
  Company Number: 2022A158466

PATIENT
  Sex: Male
  Weight: 73 kg

DRUGS (1)
  1. IMFINZI [Suspect]
     Active Substance: DURVALUMAB
     Indication: Non-small cell lung cancer stage III
     Dosage: 740.0MG UNKNOWN
     Route: 042
     Dates: start: 20210326, end: 20210603

REACTIONS (3)
  - Fungal infection [Recovered/Resolved]
  - Radiation pneumonitis [Recovered/Resolved]
  - Interstitial lung disease [Recovered/Resolved]
